FAERS Safety Report 8801866 (Version 5)
Quarter: 2013Q1

REPORT INFORMATION
  Report Type: Spontaneous
  Country: US (occurrence: US)
  Receive Date: 20120921
  Receipt Date: 20130104
  Transmission Date: 20140127
  Serious: Yes (Other)
  Sender: FDA-Public Use
  Company Number: US-PFIZER INC-2012229666

PATIENT
  Sex: Female

DRUGS (2)
  1. PRISTIQ [Suspect]
     Indication: DEPRESSION
     Dosage: 50 MG, UNK
     Route: 048
  2. LISINOPRIL [Suspect]
     Dosage: UNK

REACTIONS (8)
  - Drug ineffective [Unknown]
  - Suicidal ideation [Recovered/Resolved]
  - Dementia [Not Recovered/Not Resolved]
  - Confusional state [Not Recovered/Not Resolved]
  - Malaise [Unknown]
  - Bedridden [Unknown]
  - Gait disturbance [Unknown]
  - Dizziness [Unknown]
